FAERS Safety Report 13838037 (Version 1)
Quarter: 2017Q3

REPORT INFORMATION
  Report Type: Spontaneous
  Country: IT (occurrence: IT)
  Receive Date: 20170807
  Receipt Date: 20170807
  Transmission Date: 20171127
  Serious: Yes (Hospitalization, Other)
  Sender: FDA-Public Use
  Company Number: IT-ORION CORPORATION ORION PHARMA-ENT 2017-0125

PATIENT
  Age: 67 Year
  Sex: Male

DRUGS (4)
  1. QUETIAPINE (NGX) [Suspect]
     Active Substance: QUETIAPINE
     Indication: PARKINSON^S DISEASE
     Route: 065
  2. LEVODOPA-CARBIDOPA (NGX) [Suspect]
     Active Substance: CARBIDOPA\LEVODOPA
     Indication: PARKINSON^S DISEASE
     Dosage: 200 MG LEVOOPA AND 50 MG CARBIDOPA
     Route: 065
  3. ENTACAPONE. [Suspect]
     Active Substance: ENTACAPONE
     Indication: PARKINSON^S DISEASE
     Route: 065
  4. PRAMIPEXOLE (NGX) [Suspect]
     Active Substance: PRAMIPEXOLE
     Indication: PARKINSON^S DISEASE
     Route: 065

REACTIONS (14)
  - Myoglobin blood increased [Recovered/Resolved]
  - Somnolence [Unknown]
  - Decubitus ulcer [Unknown]
  - Akinesia [Recovering/Resolving]
  - Constipation [Unknown]
  - Confusional state [Recovered/Resolved]
  - Acute respiratory failure [Unknown]
  - Musculoskeletal stiffness [Unknown]
  - Pyrexia [Recovered/Resolved]
  - Hallucination [Recovered/Resolved]
  - Weight decreased [Unknown]
  - Therapeutic response shortened [Recovered/Resolved]
  - Blood creatine phosphokinase increased [Recovered/Resolved]
  - Dyskinesia [Recovered/Resolved]
